FAERS Safety Report 6422812-5 (Version None)
Quarter: 2009Q4

REPORT INFORMATION
  Report Type: 
  Country: None (occurrence: None)
  Receive Date: 20091102
  Receipt Date: 20091002
  Transmission Date: 20100525
  Serious: No
  Sender: FDA-Public Use
  Company Number: US-BAYER-200915269BCC

PATIENT
  Sex: Female

DRUGS (2)
  1. ALEVE (CAPLET) [Suspect]
     Indication: BACK PAIN
     Dosage: TOTAL DAILY DOSE: 440 MG  UNIT DOSE: 220 MG
     Route: 048
     Dates: start: 20091002
  2. ASPIRIN [Suspect]
     Indication: INTERVERTEBRAL DISC PROTRUSION
     Dosage: TOTAL DAILY DOSE: 162 MG  UNIT DOSE: 81 MG
     Route: 048
     Dates: start: 20091002

REACTIONS (1)
  - DYSPNOEA [None]
